FAERS Safety Report 11006822 (Version 1)
Quarter: 2015Q2

REPORT INFORMATION
  Report Type: Spontaneous
  Country: US (occurrence: US)
  Receive Date: 20150409
  Receipt Date: 20150409
  Transmission Date: 20150821
  Serious: No
  Sender: FDA-Public Use
  Company Number: US-ALLERGAN-1418361US

PATIENT
  Age: 69 Year
  Sex: Female

DRUGS (1)
  1. LATISSE [Suspect]
     Active Substance: BIMATOPROST
     Indication: GROWTH OF EYELASHES
     Dosage: UNK
     Dates: start: 20140105

REACTIONS (5)
  - Eye irritation [Recovered/Resolved]
  - Burning sensation [Recovered/Resolved]
  - Eye infection [Recovered/Resolved]
  - Visual acuity reduced [Recovered/Resolved]
  - Lacrimation increased [Recovered/Resolved]
